FAERS Safety Report 9783984 (Version 2)
Quarter: 2014Q2

REPORT INFORMATION
  Report Type: Spontaneous
  Country: US (occurrence: US)
  Receive Date: 20131226
  Receipt Date: 20140430
  Transmission Date: 20141212
  Serious: No
  Sender: FDA-Public Use
  Company Number: US-PFIZER INC-2013365074

PATIENT
  Age: 56 Year
  Sex: Female

DRUGS (2)
  1. INLYTA [Suspect]
     Indication: RENAL CANCER
     Dosage: 5 MG, 2X/DAY CYCLIC (2 WEEKS ON, AND 2 WEEKS OFF)
     Dates: start: 20130126
  2. INLYTA [Suspect]
     Dosage: 5 MG, UNK
     Dates: start: 20120410

REACTIONS (2)
  - Diarrhoea [Unknown]
  - Muscle spasms [Unknown]
